FAERS Safety Report 11362256 (Version 1)
Quarter: 2015Q3

REPORT INFORMATION
  Report Type: Spontaneous
  Country: US (occurrence: US)
  Receive Date: 20150810
  Receipt Date: 20150810
  Transmission Date: 20151125
  Serious: No
  Sender: FDA-Public Use
  Company Number: GXBR2015US000763

PATIENT
  Sex: Female
  Weight: 61.22 kg

DRUGS (4)
  1. LYRICA [Concomitant]
     Active Substance: PREGABALIN
     Indication: FATIGUE
  2. AMBIEN [Concomitant]
     Active Substance: ZOLPIDEM TARTRATE
     Dosage: UNK DF, UNK
  3. AMPICILLIN CAPSULES USP [Suspect]
     Active Substance: AMPICILLIN
     Indication: PHARYNGITIS STREPTOCOCCAL
     Dosage: 500 MG, TID
     Route: 048
     Dates: start: 20141206, end: 20141216
  4. LYRICA [Concomitant]
     Active Substance: PREGABALIN
     Indication: FIBROMYALGIA

REACTIONS (1)
  - Drug ineffective [Not Recovered/Not Resolved]
